FAERS Safety Report 15362703 (Version 2)
Quarter: 2019Q2

REPORT INFORMATION
  Report Type: Spontaneous
  Country: US (occurrence: US)
  Receive Date: 20180907
  Receipt Date: 20190509
  Transmission Date: 20190711
  Serious: Yes (Hospitalization, Other)
  Sender: FDA-Public Use
  Company Number: PHEH2018US036250

PATIENT
  Age: 54 Year
  Sex: Female

DRUGS (1)
  1. COSENTYX [Suspect]
     Active Substance: SECUKINUMAB
     Indication: PSORIATIC ARTHROPATHY
     Dosage: 300 MG, QMO
     Route: 058
     Dates: start: 20180111

REACTIONS (5)
  - Respiratory tract infection [Unknown]
  - Facial paralysis [Recovering/Resolving]
  - Uveitis [Unknown]
  - Facial pain [Recovering/Resolving]
  - Influenza like illness [Unknown]

NARRATIVE: CASE EVENT DATE: 20190421
